FAERS Safety Report 8992682 (Version 1)
Quarter: 2013Q1

REPORT INFORMATION
  Report Type: Report from Study
  Country: BR (occurrence: BR)
  Receive Date: 20130101
  Receipt Date: 20130101
  Transmission Date: 20140127
  Serious: Yes (Death, Hospitalization, Other)
  Sender: FDA-Public Use
  Company Number: BR-BRISTOL-MYERS SQUIBB COMPANY-15422330

PATIENT
  Age: 56 Year
  Sex: Male

DRUGS (1)
  1. DASATINIB [Suspect]
     Indication: PROSTATE CANCER
     Route: 048
     Dates: start: 20100903, end: 20101202

REACTIONS (3)
  - Septic shock [Fatal]
  - Depression suicidal [Recovered/Resolved]
  - Febrile neutropenia [Recovered/Resolved]
